FAERS Safety Report 10303222 (Version 2)
Quarter: 2014Q3

REPORT INFORMATION
  Report Type: Spontaneous
  Country: US (occurrence: US)
  Receive Date: 20140714
  Receipt Date: 20140728
  Transmission Date: 20150326
  Serious: Yes (Other)
  Sender: FDA-Public Use
  Company Number: US-ACTAVIS-2014-15642

PATIENT
  Age: 67 Year
  Sex: Male

DRUGS (6)
  1. ACITRETIN (UNKNOWN) [Suspect]
     Active Substance: ACITRETIN
     Indication: SKIN CANCER
     Dosage: 10 MG, DAILY
     Route: 065
  2. ACITRETIN (UNKNOWN) [Suspect]
     Active Substance: ACITRETIN
     Dosage: 20 MG, DAILY
     Route: 065
  3. PREDNISONE (WATSON LABORATORIES) [Suspect]
     Active Substance: PREDNISONE
     Indication: PROPHYLAXIS AGAINST TRANSPLANT REJECTION
     Dosage: UNK
     Route: 065
  4. CAPECITABINE (UNKNOWN) [Suspect]
     Active Substance: CAPECITABINE
     Indication: SKIN CANCER
     Dosage: 1 G, BID
     Route: 048
  5. TACROLIMUS (WATSON LABORATORIES) [Suspect]
     Active Substance: TACROLIMUS
     Indication: PROPHYLAXIS AGAINST TRANSPLANT REJECTION
     Dosage: UNK
     Route: 065
  6. MYCOPHENOLATE MOFETIL (UNKNOWN) [Suspect]
     Active Substance: MYCOPHENOLATE MOFETIL
     Indication: PROPHYLAXIS AGAINST TRANSPLANT REJECTION
     Dosage: UNK
     Route: 065

REACTIONS (6)
  - Squamous cell carcinoma [Unknown]
  - Malignant fibrous histiocytoma [Unknown]
  - Atypical fibroxanthoma [Unknown]
  - Basal cell carcinoma [Unknown]
  - Herpes zoster [Unknown]
  - Drug ineffective [Unknown]
